FAERS Safety Report 6203889-9 (Version None)
Quarter: 2009Q2

REPORT INFORMATION
  Report Type: 
  Country: None (occurrence: None)
  Receive Date: 20090526
  Receipt Date: 20090526
  Transmission Date: 20091009
  Serious: Yes (Other)
  Sender: FDA-Public Use
  Company Number: None

PATIENT
  Age: 57 Year
  Sex: Female
  Weight: 72.5755 kg

DRUGS (2)
  1. CELEXA [Suspect]
     Indication: AGITATION
  2. CELEXA [Suspect]
     Indication: DEPRESSION

REACTIONS (1)
  - ALOPECIA [None]
